FAERS Safety Report 17164966 (Version 3)
Quarter: 2019Q4

REPORT INFORMATION
  Report Type: Report from Study
  Country: US (occurrence: US)
  Receive Date: 20191217
  Receipt Date: 20191225
  Transmission Date: 20200122
  Serious: Yes (Other)
  Sender: FDA-Public Use
  Company Number: US-PHARMING-PHAUS2019000603

PATIENT

DRUGS (1)
  1. RUCONEST [Suspect]
     Active Substance: HUMAN C1-ESTERASE INHIBITOR
     Indication: DELAYED GRAFT FUNCTION
     Dosage: 5940 IU INTERNATIONAL UNIT(S), SINGLE
     Route: 042
     Dates: start: 20191015

REACTIONS (5)
  - Thrombosis [Recovered/Resolved]
  - Product use in unapproved indication [Unknown]
  - Mouth haemorrhage [Unknown]
  - Hypoventilation [Unknown]
  - Oxygen saturation decreased [Recovered/Resolved]

NARRATIVE: CASE EVENT DATE: 20191015
